FAERS Safety Report 5126891-7 (Version None)
Quarter: 2006Q4

REPORT INFORMATION
  Report Type: 
  Country: None (occurrence: None)
  Receive Date: 20061011
  Receipt Date: 20061011
  Transmission Date: 20070319
  Serious: Yes (Death, Hospitalization)
  Sender: FDA-Public Use
  Company Number: None

PATIENT
  Age: 91 Year
  Sex: Male
  Weight: 63.3 kg

DRUGS (10)
  1. ENOXAPARIN 80MG [Suspect]
     Indication: DEEP VEIN THROMBOSIS
     Dosage: 70MG -0.7ML- Q 12H SQ
     Route: 058
     Dates: start: 20060803, end: 20060809
  2. ENOXAPARIN 80MG [Suspect]
     Indication: PULMONARY EMBOLISM
     Dosage: 70MG -0.7ML- Q 12H SQ
     Route: 058
     Dates: start: 20060803, end: 20060809
  3. LORATADINE [Concomitant]
  4. ACETAMINOPHEN [Concomitant]
  5. BICALUTAMIDE [Concomitant]
  6. DOCUSATE NA [Concomitant]
  7. FERROUS SO4 [Concomitant]
  8. FLUNISOLIDE [Concomitant]
  9. GLIPIZIDE [Concomitant]
  10. OMEPRAZOLE [Concomitant]

REACTIONS (6)
  - ABDOMINAL HAEMATOMA [None]
  - BLOOD PRESSURE DECREASED [None]
  - HAEMATOCRIT DECREASED [None]
  - HAEMATURIA [None]
  - HAEMOGLOBIN DECREASED [None]
  - RESPIRATORY DISTRESS [None]
